FAERS Safety Report 25568066 (Version 1)
Quarter: 2025Q3

REPORT INFORMATION
  Report Type: Spontaneous
  Country: EU (occurrence: EU)
  Receive Date: 20250716
  Receipt Date: 20250716
  Transmission Date: 20251021
  Serious: Yes (Death, Congenital Anomaly, Other)
  Sender: BIOGEN
  Company Number: EU-BIOGEN-2025BI01316845

PATIENT

DRUGS (1)
  1. TYSABRI [Suspect]
     Active Substance: NATALIZUMAB
     Indication: Multiple sclerosis
     Route: 050
     Dates: start: 20250220

REACTIONS (1)
  - Conjoined twins [Fatal]
